FAERS Safety Report 7248029-2 (Version None)
Quarter: 2011Q1

REPORT INFORMATION
  Report Type: 
  Country: None (occurrence: None)
  Receive Date: 20110127
  Receipt Date: 20110125
  Transmission Date: 20110831
  Serious: Yes (Other)
  Sender: FDA-Public Use
  Company Number: US-BAYER-201040981NA

PATIENT
  Sex: Female

DRUGS (2)
  1. INTERFERON BETA-1B [Suspect]
     Dosage: 8 MIU, QOD
     Route: 058
     Dates: start: 20101111
  2. INTERFERON BETA-1B [Suspect]
     Indication: MULTIPLE SCLEROSIS
     Dosage: 8 MIU, QOD
     Route: 058
     Dates: start: 19990406, end: 20101104

REACTIONS (1)
  - CONVULSION [None]
